FAERS Safety Report 15229002 (Version 1)
Quarter: 2018Q3

REPORT INFORMATION
  Report Type: Report from Study
  Country: US (occurrence: US)
  Receive Date: 20180801
  Receipt Date: 20180801
  Transmission Date: 20181010
  Serious: No
  Sender: FDA-Public Use
  Company Number: US-AMGEN-USASL2017124954

PATIENT
  Age: 73 Year
  Sex: Male

DRUGS (1)
  1. NPLATE [Suspect]
     Active Substance: ROMIPLOSTIM
     Indication: IMMUNE THROMBOCYTOPENIC PURPURA
     Dosage: UNK
     Route: 065

REACTIONS (10)
  - Cystitis [Recovering/Resolving]
  - Drug effect decreased [Unknown]
  - Platelet count decreased [Recovering/Resolving]
  - Herpes zoster [Unknown]
  - Fatigue [Unknown]
  - Neuropathy peripheral [Unknown]
  - Impaired driving ability [Unknown]
  - Somnolence [Unknown]
  - Platelet count increased [Unknown]
  - Paraesthesia [Unknown]

NARRATIVE: CASE EVENT DATE: 2016
